FAERS Safety Report 25342963 (Version 1)
Quarter: 2025Q2

REPORT INFORMATION
  Report Type: Report from Study
  Country: CO (occurrence: CO)
  Receive Date: 20250521
  Receipt Date: 20250521
  Transmission Date: 20250716
  Serious: Yes (Other)
  Sender: ASTELLAS
  Company Number: CO-ASTELLAS-2025-AER-025714

PATIENT
  Age: 80 Year
  Sex: Male
  Weight: 79 kg

DRUGS (1)
  1. ENZALUTAMIDE [Suspect]
     Active Substance: ENZALUTAMIDE
     Indication: Hormone-refractory prostate cancer
     Route: 048
     Dates: start: 20250315

REACTIONS (4)
  - Urinary incontinence [Unknown]
  - Gastritis [Not Recovered/Not Resolved]
  - Abdominal discomfort [Not Recovered/Not Resolved]
  - Eating disorder [Not Recovered/Not Resolved]
